FAERS Safety Report 9360139 (Version 1)
Quarter: 2013Q2

REPORT INFORMATION
  Report Type: Spontaneous
  Country: RO (occurrence: RO)
  Receive Date: 20130621
  Receipt Date: 20130621
  Transmission Date: 20140414
  Serious: Yes (Hospitalization)
  Sender: FDA-Public Use
  Company Number: RO-B.I. PHARMACEUTICALS,INC./RIDGEFIELD-2013-AP-00493AP

PATIENT
  Age: 66 Year
  Sex: Male

DRUGS (3)
  1. PRADAXA [Suspect]
     Indication: PROPHYLAXIS
     Dosage: 300 MG
     Route: 048
     Dates: start: 20130423, end: 20130505
  2. PRADAXA [Suspect]
     Indication: ATRIAL FIBRILLATION
  3. CEFORT [Suspect]
     Indication: SEPSIS
     Dosage: 4 G
     Route: 042
     Dates: start: 20130501, end: 20130505

REACTIONS (2)
  - Sepsis [Recovered/Resolved]
  - Hepatocellular injury [Recovered/Resolved]
